FAERS Safety Report 12210809 (Version 6)
Quarter: 2017Q3

REPORT INFORMATION
  Report Type: Report from Study
  Country: JP (occurrence: JP)
  Receive Date: 20160325
  Receipt Date: 20170717
  Transmission Date: 20171127
  Serious: Yes (Death, Hospitalization, Other)
  Sender: FDA-Public Use
  Company Number: JP-INCYTE CORPORATION-2016IN001659

PATIENT

DRUGS (6)
  1. JAKAVI [Suspect]
     Active Substance: RUXOLITINIB
     Indication: MYELOFIBROSIS
     Dosage: 10 MG, BID
     Route: 048
     Dates: start: 20160204, end: 20161108
  2. JAKAVI [Suspect]
     Active Substance: RUXOLITINIB
     Dosage: 10 TO 30 MG
     Route: 048
  3. JAKAVI [Suspect]
     Active Substance: RUXOLITINIB
     Dosage: 10 TO 30 MG
     Route: 048
  4. HYDROXYCARBAMIDE [Concomitant]
     Active Substance: HYDROXYUREA
     Indication: LEUKAEMIA
     Dosage: UNK
     Route: 065
  5. JAKAVI [Suspect]
     Active Substance: RUXOLITINIB
     Dosage: 10 TO 30 MG
     Route: 048
  6. CYTARABINE. [Concomitant]
     Active Substance: CYTARABINE
     Indication: LEUKAEMIA
     Dosage: 100 TO 300 MG, UNK
     Route: 065

REACTIONS (5)
  - Pneumonia [Fatal]
  - Gastrointestinal haemorrhage [Fatal]
  - Myelofibrosis [Fatal]
  - Leukaemia [Fatal]
  - Haematemesis [Unknown]

NARRATIVE: CASE EVENT DATE: 20161108
